FAERS Safety Report 18619503 (Version 1)
Quarter: 2020Q4

REPORT INFORMATION
  Report Type: Spontaneous
  Country: NL (occurrence: NL)
  Receive Date: 20201215
  Receipt Date: 20201215
  Transmission Date: 20210114
  Serious: Yes (Other)
  Sender: FDA-Public Use
  Company Number: NL-ASTRAZENECA-2020SF63089

PATIENT
  Sex: Female
  Weight: 70 kg

DRUGS (10)
  1. NIFEDIPINE. [Concomitant]
     Active Substance: NIFEDIPINE
     Dosage: REGULATED RELEASE TABLET 30 MG (MILLIGRAMS)
  2. OSIMERTINIB. [Suspect]
     Active Substance: OSIMERTINIB
     Indication: NON-SMALL CELL LUNG CANCER
     Route: 048
     Dates: start: 20200129
  3. SOLIFENACINE [Concomitant]
     Active Substance: SOLIFENACIN
     Dosage: 10 MG (MILLIGRAM)
  4. METFORMINE [Concomitant]
     Active Substance: METFORMIN HYDROCHLORIDE
  5. ACENOCOUMAROL [Concomitant]
     Active Substance: ACENOCOUMAROL
     Dosage: TROMBOSIS SERVICE
  6. NITROFURANTOINE [Concomitant]
     Active Substance: NITROFURANTOIN
     Dosage: 50 MG (MILLIGRAM)
  7. TEMAZEPAM. [Concomitant]
     Active Substance: TEMAZEPAM
     Dosage: 10 MG (MILLIGRAM)
  8. DIGOXINE/ LANOXIN [Concomitant]
     Dosage: 0,125 MG (MILLIGRAM)
  9. SIMVASTATINE [Concomitant]
     Active Substance: SIMVASTATIN
  10. CALCIUMCARB/COLECAL BRUISGR [Concomitant]
     Dosage: 5600OIE 1X PER WEEK

REACTIONS (1)
  - Cystitis interstitial [Not Recovered/Not Resolved]
